FAERS Safety Report 24691809 (Version 1)
Quarter: 2024Q4

REPORT INFORMATION
  Report Type: Spontaneous
  Country: US (occurrence: None)
  Receive Date: 20241203
  Receipt Date: 20241203
  Transmission Date: 20250115
  Serious: No
  Sender: Public
  Company Number: None

PATIENT
  Age: 49 Year
  Sex: Female

DRUGS (1)
  1. HUMIRA [Suspect]
     Active Substance: ADALIMUMAB
     Indication: Crohn^s disease
     Dosage: 40/0.4 MG/ML EVERY 2 WEEKS SUBQ?
     Route: 058
     Dates: start: 20231010

REACTIONS (3)
  - Insurance issue [None]
  - Product use issue [None]
  - Crohn^s disease [None]

NARRATIVE: CASE EVENT DATE: 20240715
